FAERS Safety Report 15820362 (Version 1)
Quarter: 2019Q1

REPORT INFORMATION
  Report Type: Spontaneous
  Country: US (occurrence: US)
  Receive Date: 20190114
  Receipt Date: 20190114
  Transmission Date: 20190417
  Serious: No
  Sender: FDA-Public Use
  Company Number: US-JNJFOC-20190100834

PATIENT
  Age: 69 Year
  Sex: Male

DRUGS (14)
  1. IMODIUM A-D [Suspect]
     Active Substance: LOPERAMIDE HYDROCHLORIDE
     Route: 048
  2. METOPROLOL. [Concomitant]
     Active Substance: METOPROLOL
     Route: 065
  3. IMODIUM A-D [Suspect]
     Active Substance: LOPERAMIDE HYDROCHLORIDE
     Indication: DIARRHOEA
     Route: 048
     Dates: start: 20181228
  4. XARELTO [Concomitant]
     Active Substance: RIVAROXABAN
     Route: 065
  5. TORSEMIDE. [Concomitant]
     Active Substance: TORSEMIDE
     Route: 065
  6. LISINOPRIL. [Concomitant]
     Active Substance: LISINOPRIL
     Route: 065
  7. SPIRONOLACTONE. [Concomitant]
     Active Substance: SPIRONOLACTONE
     Route: 065
  8. GLIPIZIDE. [Concomitant]
     Active Substance: GLIPIZIDE
     Route: 065
  9. HYDRALAZINE [Concomitant]
     Active Substance: HYDRALAZINE HYDROCHLORIDE
     Route: 065
  10. AMLODIPINE [Concomitant]
     Active Substance: AMLODIPINE BESYLATE
     Route: 065
  11. ISOSORBIDE. [Concomitant]
     Active Substance: ISOSORBIDE
     Route: 065
  12. PRAVASTATIN. [Concomitant]
     Active Substance: PRAVASTATIN
     Route: 065
  13. OMEPRAZOLE. [Concomitant]
     Active Substance: OMEPRAZOLE
     Indication: PRODUCT USED FOR UNKNOWN INDICATION
     Route: 065
  14. METFORMIN [Concomitant]
     Active Substance: METFORMIN HYDROCHLORIDE
     Route: 065

REACTIONS (2)
  - Oral discomfort [Unknown]
  - Dysgeusia [Unknown]

NARRATIVE: CASE EVENT DATE: 20181228
